FAERS Safety Report 10613137 (Version 1)
Quarter: 2014Q4

REPORT INFORMATION
  Report Type: Report from Study
  Country: CA (occurrence: CA)
  Receive Date: 20141128
  Receipt Date: 20141128
  Transmission Date: 20150529
  Serious: Yes (Other)
  Sender: FDA-Public Use
  Company Number: CA-ROCHE-1496946

PATIENT
  Age: 64 Year
  Sex: Male

DRUGS (5)
  1. SEPTRA [Concomitant]
     Active Substance: SULFAMETHOXAZOLE\TRIMETHOPRIM
  2. FLOMAX [Concomitant]
     Active Substance: TAMSULOSIN HYDROCHLORIDE
  3. RITUXAN [Suspect]
     Active Substance: RITUXIMAB
     Indication: PRODUCT USED FOR UNKNOWN INDICATION
     Route: 042
  4. TRAMADOL [Concomitant]
     Active Substance: TRAMADOL
  5. RITUXAN [Suspect]
     Active Substance: RITUXIMAB
     Dosage: FREQUENCY: DAY 1 AND DAY 15?24/NOV/2014
     Route: 042

REACTIONS (2)
  - Infusion related reaction [Unknown]
  - Blindness [Unknown]

NARRATIVE: CASE EVENT DATE: 201402
